FAERS Safety Report 17974637 (Version 1)
Quarter: 2020Q3

REPORT INFORMATION
  Report Type: Spontaneous
  Country: US (occurrence: US)
  Receive Date: 20200702
  Receipt Date: 20200702
  Transmission Date: 20201103
  Serious: Yes (Disabling, Other)
  Sender: FDA-Public Use
  Company Number: None

PATIENT
  Age: 44 Year
  Sex: Female
  Weight: 79.2 kg

DRUGS (2)
  1. NP THYROID [Suspect]
     Active Substance: LEVOTHYROXINE\LIOTHYRONINE
  2. NP THYROID [Suspect]
     Active Substance: LEVOTHYROXINE\LIOTHYRONINE
     Indication: HYPOTHYROIDISM
     Dosage: ?
     Route: 048
     Dates: start: 20200501, end: 20200609

REACTIONS (10)
  - Diarrhoea [None]
  - Impaired work ability [None]
  - Vomiting [None]
  - Weight decreased [None]
  - Temperature intolerance [None]
  - Feeling abnormal [None]
  - Decreased appetite [None]
  - Fatigue [None]
  - Recalled product administered [None]
  - Feeling jittery [None]

NARRATIVE: CASE EVENT DATE: 20200422
